FAERS Safety Report 11341667 (Version 1)
Quarter: 2015Q3

REPORT INFORMATION
  Report Type: Spontaneous
  Country: US (occurrence: None)
  Receive Date: 20150803
  Receipt Date: 20150803
  Transmission Date: 20151125
  Serious: Yes (Hospitalization, Disabling, Other)
  Sender: FDA-Public Use
  Company Number: None

PATIENT
  Age: 42 Year
  Sex: Female
  Weight: 90.72 kg

DRUGS (2)
  1. TOPAMAX [Suspect]
     Active Substance: TOPIRAMATE
     Indication: THYROIDECTOMY
     Dosage: DON^T REMEMBER
  2. TOPAMAX [Suspect]
     Active Substance: TOPIRAMATE
     Indication: CANCER SURGERY
     Dosage: DON^T REMEMBER

REACTIONS (8)
  - Withdrawal syndrome [None]
  - Feeling abnormal [None]
  - Drug withdrawal headache [None]
  - Mental impairment [None]
  - Memory impairment [None]
  - Vertigo [None]
  - Unevaluable event [None]
  - Hallucination, auditory [None]

NARRATIVE: CASE EVENT DATE: 20150730
